FAERS Safety Report 24956469 (Version 2)
Quarter: 2025Q1

REPORT INFORMATION
  Report Type: Spontaneous
  Country: US (occurrence: US)
  Receive Date: 20250211
  Receipt Date: 20250214
  Transmission Date: 20250409
  Serious: No
  Sender: BIOGEN
  Company Number: US-BIOGEN-2025BI01300173

PATIENT
  Sex: Female
  Weight: 95.25 kg

DRUGS (4)
  1. TYSABRI [Suspect]
     Active Substance: NATALIZUMAB
     Indication: Multiple sclerosis
     Dosage: INFUSED OVER 1 HOUR
     Route: 050
     Dates: start: 20190222, end: 20230612
  2. Vitamin D 2 [Concomitant]
     Dosage: 1 CAPSULE EVERY WEEKS FOR 120 DAYS
     Route: 050
  3. GABAPENTIN [Concomitant]
     Active Substance: GABAPENTIN
     Dosage: FOR 90 DAYS
     Route: 050
  4. NURTEC ODT [Concomitant]
     Active Substance: RIMEGEPANT SULFATE
     Route: 050

REACTIONS (2)
  - Multiple sclerosis relapse [Unknown]
  - Optic neuritis [Unknown]
